FAERS Safety Report 8225320-4 (Version None)
Quarter: 2012Q1

REPORT INFORMATION
  Report Type: 
  Country: None (occurrence: None)
  Receive Date: 20120321
  Receipt Date: 20120313
  Transmission Date: 20120608
  Serious: Yes (Death, Hospitalization)
  Sender: FDA-Public Use
  Company Number: US-GLAXOSMITHKLINE-A0969654A

PATIENT
  Age: 77 Year
  Sex: Female

DRUGS (5)
  1. LEXAPRO [Concomitant]
  2. CALCIUM CARBONATE [Concomitant]
  3. PREDNISONE TAB [Concomitant]
  4. MULTI-VITAMIN [Concomitant]
  5. ADVAIR DISKUS 100/50 [Suspect]
     Indication: CHRONIC OBSTRUCTIVE PULMONARY DISEASE
     Dosage: 1PUFF UNKNOWN
     Route: 055

REACTIONS (1)
  - CHRONIC OBSTRUCTIVE PULMONARY DISEASE [None]
